FAERS Safety Report 9306619 (Version 2)
Quarter: 2013Q2

REPORT INFORMATION
  Report Type: Spontaneous
  Country: AU (occurrence: AU)
  Receive Date: 20130523
  Receipt Date: 20130620
  Transmission Date: 20140414
  Serious: Yes (Death)
  Sender: FDA-Public Use
  Company Number: AU-ABBOTT-13P-008-1092108-00

PATIENT
  Sex: Female
  Weight: 90 kg

DRUGS (2)
  1. HUMIRA [Suspect]
     Indication: PSORIASIS
     Dates: start: 20120829, end: 20121004
  2. HUMIRA [Suspect]
     Dates: end: 201211

REACTIONS (2)
  - Death [Fatal]
  - Metabolic syndrome [Unknown]
